FAERS Safety Report 9704507 (Version 1)
Quarter: 2013Q4

REPORT INFORMATION
  Report Type: Spontaneous
  Country: US (occurrence: None)
  Receive Date: 20131121
  Receipt Date: 20131121
  Transmission Date: 20140711
  Serious: Yes (Other)
  Sender: FDA-Public Use
  Company Number: None

PATIENT
  Age: 52 Year
  Sex: Female

DRUGS (5)
  1. CLONAZEPAM [Suspect]
     Indication: PANIC DISORDER
     Route: 048
  2. REMERON [Concomitant]
  3. PROZAC [Concomitant]
  4. OXYCODONE [Concomitant]
  5. SIMVASTATIN [Concomitant]

REACTIONS (3)
  - Drug ineffective [None]
  - Product substitution issue [None]
  - Therapeutic response unexpected with drug substitution [None]
